FAERS Safety Report 6557441-6 (Version None)
Quarter: 2010Q1

REPORT INFORMATION
  Report Type: 
  Country: None (occurrence: None)
  Receive Date: 20100129
  Receipt Date: 20100118
  Transmission Date: 20100710
  Serious: Yes (Hospitalization)
  Sender: FDA-Public Use
  Company Number: US-JNJFOC-20100108122

PATIENT
  Age: 18 Year
  Weight: 58.06 kg

DRUGS (2)
  1. TYLENOL COLD MULTI-SYMPTOM DAYTIME  COOL BURST [Suspect]
     Route: 048
  2. TYLENOL COLD MULTI-SYMPTOM DAYTIME  COOL BURST [Suspect]
     Indication: INFLUENZA LIKE ILLNESS
     Route: 048

REACTIONS (3)
  - PRODUCT QUALITY ISSUE [None]
  - SPLEEN DISORDER [None]
  - VOMITING [None]
